FAERS Safety Report 18516603 (Version 1)
Quarter: 2020Q4

REPORT INFORMATION
  Report Type: Spontaneous
  Country: US (occurrence: US)
  Receive Date: 20201118
  Receipt Date: 20201118
  Transmission Date: 20210114
  Serious: No
  Sender: FDA-Public Use
  Company Number: US-MYLANLABS-2020M1089902

PATIENT
  Age: 74 Year
  Sex: Male

DRUGS (1)
  1. YUPELRI [Suspect]
     Active Substance: REVEFENACIN
     Indication: CHRONIC OBSTRUCTIVE PULMONARY DISEASE
     Dosage: 175 MCG/3 ML, AS DIRECTED BY THE PROVIDER
     Route: 065

REACTIONS (2)
  - Bronchospasm [Unknown]
  - Dyspnoea [Unknown]
